FAERS Safety Report 7602027-5 (Version None)
Quarter: 2011Q3

REPORT INFORMATION
  Report Type: 
  Country: None (occurrence: None)
  Receive Date: 20110711
  Receipt Date: 20110711
  Transmission Date: 20111222
  Serious: Yes (Hospitalization)
  Sender: FDA-Public Use
  Company Number: US-ROXANE LABORATORIES, INC.-2011-RO-00750RO

PATIENT
  Age: 66 Year
  Sex: Male
  Weight: 81 kg

DRUGS (11)
  1. OXYCODONE HCL AND ACETAMINOPHEN [Concomitant]
     Indication: PAIN
     Dates: start: 20110301
  2. PANTOPRAZOLE [Concomitant]
     Indication: GASTROOESOPHAGEAL REFLUX DISEASE
     Dates: start: 20070101
  3. DEXAMETHASONE [Suspect]
     Indication: FATIGUE
     Dosage: 4 MG
     Route: 048
     Dates: start: 20110312, end: 20110415
  4. VALSARTAN [Concomitant]
     Indication: HYPERTENSION
     Dates: start: 20100401
  5. ACETAMINOPHEN [Concomitant]
     Indication: COGNITIVE DISORDER
     Dates: start: 20100201
  6. FONDAPARINUX SODIUM [Concomitant]
     Indication: THROMBOPHLEBITIS
     Dates: start: 20020201
  7. FUROSEMIDE [Concomitant]
     Indication: HYPERTENSION
     Dates: start: 20100424
  8. CRIZOTINIB [Suspect]
     Indication: NON-SMALL CELL LUNG CANCER
     Dosage: 500 MG
     Route: 048
     Dates: start: 20110330, end: 20110415
  9. SENNA FRUIT [Concomitant]
     Indication: CONSTIPATION
     Dates: start: 20100201
  10. DOCUSATE SODIUM [Concomitant]
     Indication: CONSTIPATION
     Dates: start: 20100201
  11. METHYLPHENIDATE HCL [Concomitant]
     Indication: FATIGUE
     Dates: start: 20110301

REACTIONS (1)
  - LARGE INTESTINE PERFORATION [None]
